FAERS Safety Report 21701321 (Version 1)
Quarter: 2022Q4

REPORT INFORMATION
  Report Type: Spontaneous
  Country: US (occurrence: None)
  Receive Date: 20221208
  Receipt Date: 20221208
  Transmission Date: 20230113
  Serious: Yes (Hospitalization)
  Sender: FDA-Public Use
  Company Number: None

PATIENT
  Age: 56 Year
  Sex: Female
  Weight: 91.2 kg

DRUGS (1)
  1. IRON DEXTRAN [Suspect]
     Active Substance: IRON DEXTRAN
     Indication: Anaemia
     Route: 042
     Dates: start: 20221129

REACTIONS (6)
  - Feeling abnormal [None]
  - Loss of consciousness [None]
  - Cardio-respiratory arrest [None]
  - Seizure [None]
  - Stress [None]
  - Hypersensitivity [None]

NARRATIVE: CASE EVENT DATE: 20221129
